FAERS Safety Report 18118046 (Version 1)
Quarter: 2020Q3

REPORT INFORMATION
  Report Type: Spontaneous
  Country: HR (occurrence: HR)
  Receive Date: 20200806
  Receipt Date: 20200806
  Transmission Date: 20201103
  Serious: Yes (Other)
  Sender: FDA-Public Use
  Company Number: HR-ASTRAZENECA-2020SE95502

PATIENT
  Age: 30 Year
  Sex: Male

DRUGS (3)
  1. QUETIAPIN [Suspect]
     Active Substance: QUETIAPINE
     Route: 048
     Dates: start: 20200414, end: 20200414
  2. CERSON [Suspect]
     Active Substance: NITRAZEPAM
     Route: 048
     Dates: start: 20200414, end: 20200414
  3. RISPERIDON [Suspect]
     Active Substance: RISPERIDONE
     Route: 048
     Dates: start: 20200414, end: 20200414

REACTIONS (3)
  - Suicide attempt [Unknown]
  - Intentional overdose [Unknown]
  - Somnolence [Unknown]

NARRATIVE: CASE EVENT DATE: 20200414
